FAERS Safety Report 7081331-6 (Version None)
Quarter: 2010Q4

REPORT INFORMATION
  Report Type: 
  Country: None (occurrence: None)
  Receive Date: 20101025
  Receipt Date: 20101014
  Transmission Date: 20110411
  Serious: Yes (Hospitalization)
  Sender: FDA-Public Use
  Company Number: 2010-3524

PATIENT
  Age: 75 Year
  Sex: Female

DRUGS (1)
  1. APO-GO PFS (APO-GO) (APOMORPHINE HYDROCHLORIDE) (APOMORPHINE HYDROCHLO [Suspect]
     Indication: PRODUCT USED FOR UNKNOWN INDICATION
     Dosage: CONTINUOUS, SUBCUTANEOUS
     Route: 058
     Dates: start: 20100920

REACTIONS (1)
  - GENERAL PHYSICAL HEALTH DETERIORATION [None]
